FAERS Safety Report 9476068 (Version 2)
Quarter: 2013Q3

REPORT INFORMATION
  Report Type: Spontaneous
  Country: JP (occurrence: JP)
  Receive Date: 20130826
  Receipt Date: 20130826
  Transmission Date: 20140515
  Serious: Yes (Other)
  Sender: FDA-Public Use
  Company Number: JP-AMGEN-JPNSP2013058146

PATIENT
  Age: 73 Year
  Sex: Female

DRUGS (6)
  1. ARANESP [Suspect]
     Indication: NEPHROGENIC ANAEMIA
     Dosage: UNK
     Route: 065
     Dates: start: 201303
  2. CONIEL [Concomitant]
     Dosage: UNK
     Route: 048
  3. TAKEPRON [Concomitant]
     Dosage: UNK
     Route: 065
  4. CLARITH [Concomitant]
     Dosage: UNK
     Route: 048
  5. FERRUM                             /00023505/ [Concomitant]
     Dosage: UNK
     Route: 048
  6. SAWACILLIN [Concomitant]
     Dosage: UNK
     Route: 048

REACTIONS (1)
  - Myelodysplastic syndrome [Unknown]
